FAERS Safety Report 17118114 (Version 1)
Quarter: 2019Q4

REPORT INFORMATION
  Report Type: Spontaneous
  Country: ES (occurrence: ES)
  Receive Date: 20191205
  Receipt Date: 20191205
  Transmission Date: 20200122
  Serious: Yes (Hospitalization)
  Sender: FDA-Public Use
  Company Number: ES-MYLANLABS-2019M1119385

PATIENT
  Age: 55 Year
  Sex: Female

DRUGS (3)
  1. MYCOPHENOLATE MOFETIL. [Suspect]
     Active Substance: MYCOPHENOLATE MOFETIL
     Indication: SOLID ORGAN TRANSPLANT
     Dosage: 180 MILLIGRAM, BID
     Route: 048
     Dates: start: 20180727, end: 20190322
  2. TACROLIMUS. [Interacting]
     Active Substance: TACROLIMUS
     Indication: SOLID ORGAN TRANSPLANT
     Dosage: 20 MILLIGRAM, QD
     Route: 048
     Dates: start: 20180727, end: 20190322
  3. PREDNISONA [Interacting]
     Active Substance: PREDNISONE
     Indication: SOLID ORGAN TRANSPLANT
     Dosage: 10 MILLIGRAM, QD
     Route: 048
     Dates: start: 20180727, end: 20190322

REACTIONS (2)
  - Genitourinary tract infection [Recovered/Resolved]
  - Drug interaction [Unknown]

NARRATIVE: CASE EVENT DATE: 20181101
